FAERS Safety Report 11164140 (Version 1)
Quarter: 2015Q2

REPORT INFORMATION
  Report Type: Spontaneous
  Country: US (occurrence: US)
  Receive Date: 20150604
  Receipt Date: 20150604
  Transmission Date: 20150821
  Serious: Yes (Other)
  Sender: FDA-Public Use
  Company Number: US-SA-2015SA076083

PATIENT

DRUGS (1)
  1. TUBERCULIN PPD [Suspect]
     Active Substance: TUBERCULIN PURIFIED PROTEIN DERIVATIVE
     Indication: TUBERCULIN TEST
     Route: 065

REACTIONS (4)
  - Retinal detachment [Unknown]
  - Uveitis [Unknown]
  - Induration [Unknown]
  - Injection site induration [Unknown]
